FAERS Safety Report 4727441-7 (Version None)
Quarter: 2005Q3

REPORT INFORMATION
  Report Type: 
  Country: None (occurrence: None)
  Receive Date: 20050725
  Receipt Date: 20050725
  Transmission Date: 20060218
  Serious: Yes (Hospitalization)
  Sender: FDA-Public Use
  Company Number: None

PATIENT
  Age: 44 Year
  Sex: Male
  Weight: 74.8435 kg

DRUGS (1)
  1. KENALOG [Suspect]
     Indication: HYPERSENSITIVITY
     Dosage: 80 MG     X 1    INTRAMUSCU
     Route: 030
     Dates: start: 20050703, end: 20050703

REACTIONS (8)
  - DIZZINESS [None]
  - HYPOTENSION [None]
  - PRURITUS [None]
  - PSYCHOMOTOR HYPERACTIVITY [None]
  - TONIC CLONIC MOVEMENTS [None]
  - TONIC CONVULSION [None]
  - URINARY INCONTINENCE [None]
  - VOMITING [None]
